FAERS Safety Report 7558974-6 (Version None)
Quarter: 2011Q2

REPORT INFORMATION
  Report Type: 
  Country: None (occurrence: None)
  Receive Date: 20110621
  Receipt Date: 20110606
  Transmission Date: 20111010
  Serious: No
  Sender: FDA-Public Use
  Company Number: US-B.I. PHARMACEUTICALS,INC./RIDGEFIELD-2011-BP-14813BP

PATIENT
  Sex: Female

DRUGS (7)
  1. BENTYL [Concomitant]
     Indication: INTESTINAL RESECTION
     Route: 048
     Dates: start: 20080101
  2. ROBAXIN [Concomitant]
     Indication: MUSCLE SPASMS
     Route: 048
     Dates: start: 20090101
  3. METHADONE HCL [Concomitant]
     Indication: FIBROMYALGIA
     Route: 048
     Dates: start: 19860101
  4. SPIRIVA [Suspect]
     Indication: CHRONIC OBSTRUCTIVE PULMONARY DISEASE
     Dosage: 18 MCG
     Route: 055
     Dates: start: 20080601, end: 20110411
  5. NADOLOL [Concomitant]
     Indication: VENTRICULAR EXTRASYSTOLES
     Route: 048
  6. KLONOPIN [Concomitant]
     Indication: MUSCLE SPASMS
     Route: 048
     Dates: start: 20090101
  7. METHADONE HCL [Concomitant]
     Indication: INTERVERTEBRAL DISC DEGENERATION

REACTIONS (2)
  - DYSPNOEA [None]
  - LUNG DISORDER [None]
